FAERS Safety Report 20125657 (Version 2)
Quarter: 2021Q4

REPORT INFORMATION
  Report Type: Spontaneous
  Country: US (occurrence: US)
  Receive Date: 20211129
  Receipt Date: 20211129
  Transmission Date: 20220303
  Serious: Yes (Disabling)
  Sender: FDA-Public Use
  Company Number: US-PFIZER INC-202101631928

PATIENT
  Age: 53 Year
  Sex: Female

DRUGS (1)
  1. DILANTIN [Suspect]
     Active Substance: PHENYTOIN
     Indication: Seizure
     Dosage: UNK

REACTIONS (1)
  - Feeling abnormal [Unknown]
